FAERS Safety Report 15452881 (Version 1)
Quarter: 2018Q4

REPORT INFORMATION
  Report Type: Spontaneous
  Country: CN (occurrence: CN)
  Receive Date: 20181001
  Receipt Date: 20181001
  Transmission Date: 20190204
  Serious: Yes (Other)
  Sender: FDA-Public Use
  Company Number: CN-PFIZER INC-2018371518

PATIENT
  Age: 76 Year
  Sex: Female
  Weight: 53 kg

DRUGS (1)
  1. CORDARONE [Suspect]
     Active Substance: AMIODARONE HYDROCHLORIDE
     Indication: ATRIAL FIBRILLATION
     Dosage: 0.2 G, 3X/DAY
     Route: 048
     Dates: start: 20180620, end: 20180624

REACTIONS (3)
  - Electrocardiogram QT prolonged [Recovering/Resolving]
  - Sinus bradycardia [Unknown]
  - Electrocardiogram ST-T change [Unknown]

NARRATIVE: CASE EVENT DATE: 20180624
